FAERS Safety Report 8592197-7 (Version None)
Quarter: 2012Q3

REPORT INFORMATION
  Report Type: 
  Country: None (occurrence: None)
  Receive Date: 20120814
  Receipt Date: 20070616
  Transmission Date: 20120928
  Serious: Yes (Other)
  Sender: FDA-Public Use
  Company Number: CO-PFIZER INC-2012192682

PATIENT
  Age: 72 Year
  Sex: Male

DRUGS (7)
  1. QUINAPRIL AND HYDROCHLOROTHIAZIDE [Suspect]
     Indication: HYPERTENSION
     Dosage: QUINAPRIL HYDROCHLORIDE 20 MG/HYDROCHLOROTHIAZIDE 12.5 MG, 1X/DAY
  2. ENALAPRIL MALEATE [Concomitant]
     Dosage: 20 MG, 2X/DAY
  3. AMLODIPINE [Concomitant]
     Dosage: 5 MG, 2X/DAY
  4. HYDROCHLOROTHIAZIDE [Concomitant]
     Dosage: 25 MG, 1X/DAY
  5. GEMFIBROZIL [Concomitant]
     Dosage: 1200 MG, 1X/DAY
  6. METFORMIN [Concomitant]
     Dosage: 850 MG, 2X/DAY
  7. VERAPAMIL HYDROCHLORIDE [Concomitant]
     Dosage: 120 MG, 3X/DAY

REACTIONS (1)
  - CARDIAC MURMUR [None]
